FAERS Safety Report 7237526-1 (Version None)
Quarter: 2011Q1

REPORT INFORMATION
  Report Type: 
  Country: None (occurrence: None)
  Receive Date: 20110121
  Receipt Date: 20110113
  Transmission Date: 20110831
  Serious: Yes (Disabling)
  Sender: FDA-Public Use
  Company Number: GB-PFIZER INC-2011009618

PATIENT
  Age: 84 Year
  Sex: Male
  Weight: 90 kg

DRUGS (20)
  1. ORAMORPH SR [Concomitant]
     Dosage: 10 ML, 3X/DAY
  2. TAMSULOSIN HYDROCHLORIDE [Concomitant]
     Dosage: 400 UG, 1X/DAY
  3. CLOPIDOGREL [Concomitant]
     Dosage: 75 MG, 1X/DAY
  4. DIGOXIN [Concomitant]
     Dosage: 125 UG, 1X/DAY
  5. FORTISIP [Concomitant]
     Dosage: 1 DF, 3X/DAY
  6. METHOCARBAMOL [Concomitant]
     Dosage: 750 MG, 1X/DAY
  7. OMEPRAZOLE [Concomitant]
     Dosage: 40 MG, 1X/DAY
  8. ZOPICLONE [Concomitant]
     Dosage: 3.75 MG, 1X/DAY
  9. MOVICOL [Concomitant]
     Dosage: 1 DF, 2X/DAY
     Route: 048
  10. TEGRETOL [Concomitant]
     Dosage: 200 MG, 2X/DAY
  11. CITALOPRAM HYDROBROMIDE [Concomitant]
     Dosage: 10 MG, 1X/DAY
  12. SIMVASTATIN [Concomitant]
     Dosage: 40 MG, 1X/DAY
  13. GLYCERYL TRINITRATE [Concomitant]
     Dosage: 400 UG, AS NEEDED
  14. LEVETIRACETAM [Concomitant]
     Dosage: 250 MG, 3X/DAY
  15. SENNA [Concomitant]
     Dosage: 7.5 MG, 2X/DAY
  16. SERETIDE [Concomitant]
     Dosage: 2 DF, 2X/DAY
     Route: 055
  17. PREGABALIN [Suspect]
     Indication: PAIN
     Dosage: UNK
     Route: 048
     Dates: start: 20101224, end: 20101228
  18. ALLOPURINOL [Concomitant]
     Dosage: 100 MG, 1X/DAY
  19. CETIRIZINE [Concomitant]
     Dosage: 10 MG, 1X/DAY
  20. FUROSEMIDE [Concomitant]
     Dosage: 40 MG, 2X/DAY

REACTIONS (18)
  - DISTURBANCE IN ATTENTION [None]
  - BALANCE DISORDER [None]
  - MENTAL IMPAIRMENT [None]
  - ABNORMAL DREAMS [None]
  - DRY MOUTH [None]
  - VISION BLURRED [None]
  - DISORIENTATION [None]
  - DYSARTHRIA [None]
  - OEDEMA PERIPHERAL [None]
  - CLUMSINESS [None]
  - GAIT DISTURBANCE [None]
  - MEMORY IMPAIRMENT [None]
  - CONFUSIONAL STATE [None]
  - PERSONALITY CHANGE [None]
  - DIZZINESS [None]
  - HALLUCINATION [None]
  - SPEECH DISORDER [None]
  - TREMOR [None]
